FAERS Safety Report 10337580 (Version 7)
Quarter: 2016Q2

REPORT INFORMATION
  Report Type: Report from Study
  Country: CA (occurrence: CA)
  Receive Date: 20140724
  Receipt Date: 20160624
  Transmission Date: 20160815
  Serious: Yes (Other)
  Sender: FDA-Public Use
  Company Number: CA-ROCHE-1152645

PATIENT
  Age: 60 Year
  Sex: Female
  Weight: 63.5 kg

DRUGS (9)
  1. ACETAMINOPHEN. [Concomitant]
     Active Substance: ACETAMINOPHEN
     Indication: PREMEDICATION
     Route: 048
     Dates: start: 20100806
  2. RITUXAN [Suspect]
     Active Substance: RITUXIMAB
     Route: 042
     Dates: start: 20150511
  3. CELEBREX [Concomitant]
     Active Substance: CELECOXIB
  4. DIPHENHYDRAMINE HCL [Concomitant]
     Active Substance: DIPHENHYDRAMINE HYDROCHLORIDE
     Indication: PREMEDICATION
     Route: 048
     Dates: start: 20100806
  5. PREDNISONE. [Concomitant]
     Active Substance: PREDNISONE
     Dosage: NIGHT BEFORE, IN MORNING
     Route: 048
     Dates: start: 20110203, end: 20130626
  6. METHYLPREDNISOLONE. [Concomitant]
     Active Substance: METHYLPREDNISOLONE
     Indication: PREMEDICATION
     Route: 042
     Dates: start: 20100806, end: 20100820
  7. RITUXAN [Suspect]
     Active Substance: RITUXIMAB
     Indication: RHEUMATOID ARTHRITIS
     Dosage: MOST RECENT RITUXIMAB INFUSION 12/DEC/2013
     Route: 042
     Dates: start: 20100806
  8. RITUXAN [Suspect]
     Active Substance: RITUXIMAB
     Route: 042
     Dates: start: 20150427
  9. PREDNISONE. [Concomitant]
     Active Substance: PREDNISONE
     Indication: PREMEDICATION
     Route: 048
     Dates: start: 20100806

REACTIONS (7)
  - Psoriasis [Unknown]
  - Tooth fracture [Unknown]
  - Blood pressure fluctuation [Unknown]
  - Rheumatoid arthritis [Not Recovered/Not Resolved]
  - Heart rate increased [Unknown]
  - Blood pressure diastolic decreased [Unknown]
  - Infusion related reaction [Unknown]

NARRATIVE: CASE EVENT DATE: 20121031
